FAERS Safety Report 10904814 (Version 1)
Quarter: 2015Q1

REPORT INFORMATION
  Report Type: Spontaneous
  Country: FR (occurrence: None)
  Receive Date: 20150306
  Receipt Date: 20150306
  Transmission Date: 20150721
  Serious: Yes (Hospitalization, Other)
  Sender: FDA-Public Use
  Company Number: FR-H14001-15-00327

PATIENT
  Age: 61 Year
  Sex: Female
  Weight: 62 kg

DRUGS (6)
  1. ARACYTINE (CYTARABINE) (UNKNOWN) (CYTARABINE)? [Suspect]
     Active Substance: CYTARABINE
     Indication: ACUTE MYELOID LEUKAEMIA
     Dosage: FROM DAY 1 TO DAY 7
     Route: 041
     Dates: start: 20080128, end: 20080203
  2. CORDARONE [Suspect]
     Active Substance: AMIODARONE HYDROCHLORIDE
     Indication: PRODUCT USED FOR UNKNOWN INDICATION
     Route: 048
     Dates: start: 20080119, end: 20080414
  3. CARDIOXANE (DEXRAZOXANE HYDROCHLORIDE) [Concomitant]
  4. NOXAFIL [Suspect]
     Active Substance: POSACONAZOLE
     Indication: PRODUCT USED FOR UNKNOWN INDICATION
     Dates: start: 20080228, end: 20080407
  5. CERUBIDINE [Suspect]
     Active Substance: DAUNORUBICIN HYDROCHLORIDE
     Indication: ACUTE MYELOID LEUKAEMIA
     Dosage: FROM DAY 1 TO DAY 7
     Route: 041
     Dates: start: 20080128, end: 20080203
  6. GEMTUZUMAB OZOGAMICIN [Suspect]
     Active Substance: GEMTUZUMAB OZOGAMICIN
     Indication: ACUTE MYELOID LEUKAEMIA
     Dosage: ON DAYS 1, 4 AND 7
     Route: 041
     Dates: start: 20080128, end: 20080203

REACTIONS (9)
  - Immune thrombocytopenic purpura [None]
  - Rectal haemorrhage [None]
  - Fall [None]
  - Loss of consciousness [None]
  - Conjunctivitis [None]
  - Febrile bone marrow aplasia [None]
  - Cholestasis [None]
  - Enterobacter test positive [None]
  - Klebsiella sepsis [None]

NARRATIVE: CASE EVENT DATE: 2008
